FAERS Safety Report 10511770 (Version 1)
Quarter: 2014Q3

REPORT INFORMATION
  Report Type: Spontaneous
  Country: US (occurrence: None)
  Receive Date: 20140926
  Receipt Date: 20140926
  Transmission Date: 20150326
  Serious: No
  Sender: FDA-Public Use
  Company Number: 1000067938

PATIENT
  Age: 78 Year
  Sex: Female

DRUGS (14)
  1. LINZESS [Suspect]
     Active Substance: LINACLOTIDE
     Indication: CONSTIPATION
     Route: 048
     Dates: start: 201404
  2. FUROSEMIDE. [Suspect]
     Active Substance: FUROSEMIDE
  3. LEVOTHYROXINE SODIUM. [Concomitant]
     Active Substance: LEVOTHYROXINE SODIUM
  4. MTV (VITAMINS NOS) [Concomitant]
  5. CALCIUM [Concomitant]
     Active Substance: CALCIUM
  6. POTASSIUM [Concomitant]
     Active Substance: POTASSIUM
  7. NOVOLOG [Concomitant]
     Active Substance: INSULIN ASPART
  8. CARVEDILOL. [Concomitant]
     Active Substance: CARVEDILOL
  9. WARFARIN [Concomitant]
     Active Substance: WARFARIN
  10. AMIODARONE [Concomitant]
     Active Substance: AMIODARONE
  11. JANUVIA (SITAGLIPTAN PHOSPHATE) [Concomitant]
  12. OMEPRAZOLE. [Concomitant]
     Active Substance: OMEPRAZOLE
  13. ATORVASTATIN [Concomitant]
     Active Substance: ATORVASTATIN
  14. LANTUS [Concomitant]
     Active Substance: INSULIN GLARGINE

REACTIONS (2)
  - Ear congestion [None]
  - Diarrhoea [None]

NARRATIVE: CASE EVENT DATE: 201404
